FAERS Safety Report 7750890-X (Version None)
Quarter: 2011Q3

REPORT INFORMATION
  Report Type: 
  Country: None (occurrence: None)
  Receive Date: 20110914
  Receipt Date: 20110909
  Transmission Date: 20111222
  Serious: Yes (Hospitalization)
  Sender: FDA-Public Use
  Company Number: DE-ABBOTT-11P-062-0853610-00

PATIENT
  Age: 27 Year
  Sex: Female
  Weight: 62 kg

DRUGS (2)
  1. HUMIRA [Suspect]
     Indication: CROHN'S DISEASE
     Route: 058
     Dates: end: 20110608
  2. AZATHIOPRINE [Concomitant]
     Indication: CROHN'S DISEASE
     Dates: start: 20110329, end: 20110630

REACTIONS (5)
  - HIDRADENITIS [None]
  - UPPER RESPIRATORY TRACT INFECTION [None]
  - ACNE [None]
  - STREPTOCOCCAL INFECTION [None]
  - PUSTULAR PSORIASIS [None]
